FAERS Safety Report 23835580 (Version 1)
Quarter: 2024Q2

REPORT INFORMATION
  Report Type: Report from Study
  Country: CA (occurrence: CA)
  Receive Date: 20240509
  Receipt Date: 20240509
  Transmission Date: 20240716
  Serious: Yes (Other)
  Sender: FDA-Public Use
  Company Number: CA-LEO Pharma-370143

PATIENT
  Age: 46 Year

DRUGS (6)
  1. ADBRY [Suspect]
     Active Substance: TRALOKINUMAB-LDRM
     Indication: Dermatitis atopic
     Dosage: LOADING DOSE.?DOSAGE FORM AND STRENGTH: 150 MG/ML PRE-FILLED SYRINGE
     Route: 058
     Dates: start: 20240411
  2. ADBRY [Suspect]
     Active Substance: TRALOKINUMAB-LDRM
     Indication: Dermatitis atopic
     Dosage: LOADING DOSE.?DOSAGE FORM AND STRENGTH: 150 MG/ML PRE-FILLED SYRINGE
     Route: 058
     Dates: start: 20240411
  3. ADBRY [Suspect]
     Active Substance: TRALOKINUMAB-LDRM
     Indication: Dermatitis atopic
     Dosage: LOADING DOSE.?DOSAGE FORM AND STRENGTH: 150 MG/ML PRE-FILLED SYRINGE
     Route: 058
     Dates: start: 20240411
  4. ADBRY [Suspect]
     Active Substance: TRALOKINUMAB-LDRM
     Indication: Dermatitis atopic
     Dosage: MAINTENANCE DOSE.?DOSAGE FORM AND STRENGTH: 150 MG/ML PRE-FILLED SYRINGE
     Route: 058
  5. ADBRY [Suspect]
     Active Substance: TRALOKINUMAB-LDRM
     Indication: Dermatitis atopic
     Dosage: MAINTENANCE DOSE.?DOSAGE FORM AND STRENGTH: 150 MG/ML PRE-FILLED SYRINGE
     Route: 058
  6. ADBRY [Suspect]
     Active Substance: TRALOKINUMAB-LDRM
     Indication: Dermatitis atopic
     Dosage: MAINTENANCE DOSE.?DOSAGE FORM AND STRENGTH: 150 MG/ML PRE-FILLED SYRINGE
     Route: 058

REACTIONS (8)
  - Sensation of foreign body [Not Recovered/Not Resolved]
  - Pharyngeal swelling [Not Recovered/Not Resolved]
  - Ocular hyperaemia [Not Recovered/Not Resolved]
  - Headache [Not Recovered/Not Resolved]
  - Fatigue [Not Recovered/Not Resolved]
  - Oropharyngeal pain [Not Recovered/Not Resolved]
  - Dyspnoea [Not Recovered/Not Resolved]
  - Lymphadenopathy [Not Recovered/Not Resolved]

NARRATIVE: CASE EVENT DATE: 20240401
